FAERS Safety Report 5127631-8 (Version None)
Quarter: 2006Q4

REPORT INFORMATION
  Report Type: 
  Country: None (occurrence: None)
  Receive Date: 20061011
  Receipt Date: 20060927
  Transmission Date: 20070319
  Serious: Yes (Death, Other)
  Sender: FDA-Public Use
  Company Number: GXKR2006DE06008

PATIENT
  Age: 53 Year
  Sex: Male

DRUGS (2)
  1. DIPHENHYDRAMINE HCL [Suspect]
     Dosage: ORAL
     Route: 048
  2. CODEINE PHOSPHATE         (CODEINE PHOSPHATE) [Concomitant]

REACTIONS (4)
  - ASPHYXIA [None]
  - DRUG ABUSER [None]
  - DRUG LEVEL INCREASED [None]
  - VOMITING [None]
